FAERS Safety Report 22630189 (Version 1)
Quarter: 2023Q2

REPORT INFORMATION
  Report Type: Spontaneous
  Country: IE (occurrence: IE)
  Receive Date: 20230622
  Receipt Date: 20230622
  Transmission Date: 20230722
  Serious: Yes (Other)
  Sender: FDA-Public Use
  Company Number: None

PATIENT
  Age: 33 Year
  Sex: Male
  Weight: 124 kg

DRUGS (5)
  1. ARIPIPRAZOLE [Suspect]
     Active Substance: ARIPIPRAZOLE
     Indication: Schizophrenia
     Dosage: ARIPIPRAZOLE (G)
     Route: 065
     Dates: start: 20230418, end: 20230505
  2. ABILIFY MAINTENA [Suspect]
     Active Substance: ARIPIPRAZOLE
     Indication: Schizophrenia
     Dosage: DEPOT SINGLE DOSE
     Route: 065
     Dates: start: 20230425
  3. MELATONIN [Concomitant]
     Active Substance: MELATONIN
     Indication: Sleep disorder
     Dosage: MELATONIN (G)
     Route: 065
     Dates: start: 20221205
  4. CHOLECALCIFEROL [Concomitant]
     Active Substance: CHOLECALCIFEROL
     Indication: Malnutrition
     Dosage: CHOLECALCIFEROL (G)
     Route: 065
     Dates: start: 20221205
  5. BISOPROLOL GENERIC [Concomitant]
     Indication: Blood pressure measurement
     Route: 065
     Dates: start: 20221206

REACTIONS (2)
  - Mania [Recovered/Resolved]
  - Treatment noncompliance [Recovered/Resolved]

NARRATIVE: CASE EVENT DATE: 20230101
